FAERS Safety Report 16648419 (Version 1)
Quarter: 2019Q3

REPORT INFORMATION
  Report Type: Spontaneous
  Country: US (occurrence: US)
  Receive Date: 20190730
  Receipt Date: 20190730
  Transmission Date: 20191004
  Serious: No
  Sender: FDA-Public Use
  Company Number: US-PERRIGO-18US010037

PATIENT
  Age: 2 Year
  Sex: Male
  Weight: 13.61 kg

DRUGS (3)
  1. CHILDRENS CETIRIZINE HYDROCHLORIDE ALLERGY [Suspect]
     Active Substance: CETIRIZINE HYDROCHLORIDE
     Indication: HYPERSENSITIVITY
     Dosage: 5 MG, QD
     Route: 048
     Dates: start: 2017
  2. COUGH AND COLD PREPARATIONS [Concomitant]
     Active Substance: UNSPECIFIED INGREDIENT
     Indication: NASOPHARYNGITIS
     Dosage: UNK
     Route: 048
     Dates: start: 201809
  3. CHILDRENS CETIRIZINE HYDROCHLORIDE ALLERGY [Suspect]
     Active Substance: CETIRIZINE HYDROCHLORIDE
     Indication: WRONG PRODUCT ADMINISTERED
     Dosage: 5 MG, TWICE IN 15 MINUTES
     Route: 048
     Dates: start: 20180921, end: 20180921

REACTIONS (2)
  - Wrong product administered [Recovered/Resolved]
  - Extra dose administered [Recovered/Resolved]

NARRATIVE: CASE EVENT DATE: 20180921
